FAERS Safety Report 10229620 (Version 1)
Quarter: 2014Q2

REPORT INFORMATION
  Report Type: Spontaneous
  Country: US (occurrence: None)
  Receive Date: 20140610
  Receipt Date: 20140610
  Transmission Date: 20141212
  Serious: Yes (Life-Threatening, Hospitalization)
  Sender: FDA-Public Use
  Company Number: None

PATIENT
  Age: 6 Year
  Sex: Female
  Weight: 20.87 kg

DRUGS (5)
  1. LAMICTAL [Suspect]
     Indication: EPILEPSY
     Dosage: 1 PILL AM , 1/2 PM- AM + PM
     Route: 048
     Dates: start: 20140206, end: 20140218
  2. DEPAKOTE SPRINKLES [Concomitant]
  3. ONFI [Concomitant]
  4. ZONEGRAN [Suspect]
  5. ADVAIR [Concomitant]

REACTIONS (5)
  - Stevens-Johnson syndrome [None]
  - Respiratory failure [None]
  - Asthenia [None]
  - Gait disturbance [None]
  - Blood disorder [None]
